FAERS Safety Report 7006380-5 (Version None)
Quarter: 2010Q3

REPORT INFORMATION
  Report Type: 
  Country: None (occurrence: None)
  Receive Date: 20100909
  Receipt Date: 20100903
  Transmission Date: 20110219
  Serious: Yes (Death, Hospitalization)
  Sender: FDA-Public Use
  Company Number: 2010SP047691

PATIENT
  Age: 68 Year
  Sex: Female

DRUGS (1)
  1. TEMODAL [Suspect]
     Indication: GLIOBLASTOMA
     Dosage: 175 MG; ; IV
     Route: 042
     Dates: start: 20090401, end: 20100701

REACTIONS (1)
  - NEOPLASM MALIGNANT [None]
